FAERS Safety Report 18016011 (Version 2)
Quarter: 2020Q3

REPORT INFORMATION
  Report Type: Spontaneous
  Country: JP (occurrence: JP)
  Receive Date: 20200713
  Receipt Date: 20200731
  Transmission Date: 20201103
  Serious: Yes (Other)
  Sender: FDA-Public Use
  Company Number: JP-PFIZER INC-2020262261

PATIENT
  Age: 80 Year
  Sex: Female
  Weight: 56 kg

DRUGS (15)
  1. FENTANYL. [Suspect]
     Active Substance: FENTANYL
     Indication: POSTOPERATIVE ANALGESIA
     Dosage: 1 ML/HOUR (1000 UG PLUS NORMAL SALINE 30 ML)
     Route: 043
     Dates: start: 20200608, end: 20200609
  2. METOCLOPRAMIDE. [Concomitant]
     Active Substance: METOCLOPRAMIDE
     Dosage: 5 MG, 3X/DAY
     Route: 048
     Dates: start: 20200611, end: 20200618
  3. NEUROTROPIN [RABBIT VACCINIA EXTRACT] [Concomitant]
     Active Substance: ORYCTOLAGUS CUNICULUS SKIN
     Indication: LUMBAR SPINAL STENOSIS
     Dosage: 2 DF, 2X/DAY
     Route: 048
     Dates: start: 20200122
  4. AMBROXOL HYDROCHLORIDE [Concomitant]
     Active Substance: AMBROXOL HYDROCHLORIDE
     Indication: SEASONAL ALLERGY
     Dosage: 45 MG, 1X/DAY
     Route: 048
     Dates: start: 20200501
  5. HOKUNALIN [TULOBUTEROL] [Concomitant]
     Active Substance: TULOBUTEROL
     Dosage: 2 MG, 1X/DAY
     Route: 058
     Dates: start: 20200601
  6. LYRICA [Suspect]
     Active Substance: PREGABALIN
     Indication: LUMBAR SPINAL STENOSIS
     Dosage: 25 MG IN THE MORNING, AND 50 MG BEFORE BEDTIME
     Route: 048
     Dates: start: 20191210, end: 20200618
  7. AMBROXOL HYDROCHLORIDE [Concomitant]
     Active Substance: AMBROXOL HYDROCHLORIDE
     Indication: PRURITUS
  8. GASSAAL [DIMETICONE] [Concomitant]
     Dosage: 40 MG, 1X/DAY
     Route: 048
  9. SOLDEM 3A [Concomitant]
     Active Substance: CARBOHYDRATES\POTASSIUM CHLORIDE\SODIUM CHLORIDE\SODIUM LACTATE
     Dosage: 80 ML/HOUR
     Route: 042
     Dates: start: 20200608, end: 20200611
  10. BFLUID [Concomitant]
     Active Substance: AMINO ACIDS\DEXTROSE\ELECTROLYTES NOS\VITAMINS
     Dosage: 20 ML/HOUR
     Route: 042
     Dates: start: 20200611, end: 20200622
  11. OLOPATADINE HCL [Concomitant]
     Active Substance: OLOPATADINE HYDROCHLORIDE
     Dosage: 5 MG, 1X/DAY
     Route: 048
     Dates: start: 20160506
  12. MAGNESIUM OXIDE. [Concomitant]
     Active Substance: MAGNESIUM OXIDE
     Dosage: 330 MG, 1X/DAY
     Route: 048
  13. CEFAZOLIN SODIUM. [Concomitant]
     Active Substance: CEFAZOLIN SODIUM
     Indication: POST PROCEDURAL INFECTION
     Dosage: 1 G, 3X/DAY
     Route: 042
     Dates: start: 20200608, end: 20200629
  14. SODIUM CHLORIDE. [Concomitant]
     Active Substance: SODIUM CHLORIDE
     Dosage: 20 ML, 1X/DAY
     Route: 042
     Dates: start: 20200611, end: 20200612
  15. STRONGER NEO MINOPHAGEN C P [Concomitant]
     Dosage: 40 ML, 1X/DAY
     Dates: start: 20200609, end: 20200622

REACTIONS (3)
  - Nausea [Recovered/Resolved]
  - Dyslalia [Recovering/Resolving]
  - Condition aggravated [Recovering/Resolving]

NARRATIVE: CASE EVENT DATE: 20200608
